FAERS Safety Report 4925249-0 (Version None)
Quarter: 2006Q1

REPORT INFORMATION
  Report Type: 
  Country: None (occurrence: None)
  Receive Date: 20060228
  Receipt Date: 20060221
  Transmission Date: 20060701
  Serious: Yes (Hospitalization, Other)
  Sender: FDA-Public Use
  Company Number: GB-JNJFOC-20060204811

PATIENT
  Sex: Female
  Weight: 108 kg

DRUGS (11)
  1. REMICADE [Suspect]
     Indication: RHEUMATOID ARTHRITIS
     Route: 042
  2. METHOTREXATE [Concomitant]
     Route: 065
  3. ALENDRONATE SODIUM [Concomitant]
     Route: 065
  4. AMITRIPTYLINE HCL [Concomitant]
     Route: 065
  5. CALCICHEW [Concomitant]
     Route: 065
  6. CO-BETALOC [Concomitant]
     Route: 065
  7. CO-BETALOC [Concomitant]
     Route: 065
  8. DETRUSITOL [Concomitant]
     Route: 065
  9. FOLIC ACID [Concomitant]
     Route: 065
  10. MELOXICAM [Concomitant]
     Route: 065
  11. THYROXINE [Concomitant]
     Route: 065

REACTIONS (1)
  - UMBILICAL HERNIA [None]
